FAERS Safety Report 16862649 (Version 3)
Quarter: 2020Q3

REPORT INFORMATION
  Report Type: Report from Study
  Country: AU (occurrence: AU)
  Receive Date: 20190927
  Receipt Date: 20191106
  Transmission Date: 20201104
  Serious: Yes (Other)
  Sender: FDA-Public Use
  Company Number: AU-VERTEX PHARMACEUTICALS-2019-008901

PATIENT
  Age: 30 Year
  Sex: Male
  Weight: 44 kg

DRUGS (16)
  1. TEZACAFTOR/IVACAFTOR/ELEXACAFTOR [Suspect]
     Active Substance: ELEXACAFTOR\IVACAFTOR\TEZACAFTOR
     Indication: CYSTIC FIBROSIS
     Dosage: 150 MG, NIGHT
     Route: 048
     Dates: start: 20190905, end: 20190916
  2. TEZACAFTOR/IVACAFTOR/ELEXACAFTOR [Suspect]
     Active Substance: ELEXACAFTOR\IVACAFTOR\TEZACAFTOR
     Dosage: FULL DOSAGE
     Route: 048
     Dates: start: 20191008
  3. SALBUTAMOL [Concomitant]
     Active Substance: ALBUTEROL
  4. CREON [Concomitant]
     Active Substance: PANCRELIPASE AMYLASE\PANCRELIPASE LIPASE\PANCRELIPASE PROTEASE
  5. ELEXACAFTOR/TEZACAFTOR/IVACAFTOR [Suspect]
     Active Substance: ELEXACAFTOR\IVACAFTOR\TEZACAFTOR
     Dosage: ONE TAB AM, IVACAFTOR TAB PM (REDUCED DOSE)
     Route: 048
     Dates: start: 20191002
  6. ELEXACAFTOR/TEZACAFTOR/IVACAFTOR [Suspect]
     Active Substance: ELEXACAFTOR\IVACAFTOR\TEZACAFTOR
     Dosage: FULL DOSAGE
     Route: 048
     Dates: start: 20191008
  7. HYPERTONIC SALINE SOLUTION [Concomitant]
     Active Substance: SODIUM CHLORIDE
  8. DOMPERIDONE [Concomitant]
     Active Substance: DOMPERIDONE
  9. ELEXACAFTOR/TEZACAFTOR/IVACAFTOR [Suspect]
     Active Substance: ELEXACAFTOR\IVACAFTOR\TEZACAFTOR
     Indication: CYSTIC FIBROSIS
     Dosage: 200/100/150 MG (MORNING)
     Route: 048
     Dates: start: 20190905, end: 20190916
  10. VITAMIN K [MENADIONE] [Concomitant]
     Active Substance: MENADIONE
  11. NEXIUM I.V. [Concomitant]
     Active Substance: ESOMEPRAZOLE SODIUM
  12. SERETIDE [Concomitant]
     Active Substance: FLUTICASONE PROPIONATE\SALMETEROL XINAFOATE
  13. TEZACAFTOR/IVACAFTOR/ELEXACAFTOR [Suspect]
     Active Substance: ELEXACAFTOR\IVACAFTOR\TEZACAFTOR
     Dosage: ONE TAB AM, IVACAFTOR TAB PM (REDUCED DOSE)
     Route: 048
     Dates: start: 20191002
  14. COLISTIN [Concomitant]
     Active Substance: COLISTIN
     Route: 055
  15. MOVICOL [Concomitant]
     Active Substance: POLYETHYLENE GLYCOL 3350\POTASSIUM CHLORIDE\SODIUM BICARBONATE\SODIUM CHLORIDE
  16. AZITHROMYCIN ANHYDROUS. [Concomitant]
     Active Substance: AZITHROMYCIN ANHYDROUS

REACTIONS (1)
  - Rash macular [Recovered/Resolved]

NARRATIVE: CASE EVENT DATE: 20190915
